FAERS Safety Report 9797758 (Version 1)
Quarter: 2014Q1

REPORT INFORMATION
  Report Type: Spontaneous
  Country: US (occurrence: US)
  Receive Date: 20140106
  Receipt Date: 20140106
  Transmission Date: 20141002
  Serious: No
  Sender: FDA-Public Use
  Company Number: US-JNJFOC-20140100469

PATIENT
  Sex: Male

DRUGS (1)
  1. DURAGESIC [Suspect]
     Indication: PRODUCT USED FOR UNKNOWN INDICATION
     Route: 062
     Dates: start: 20131225

REACTIONS (1)
  - Drug dose omission [Not Recovered/Not Resolved]
